FAERS Safety Report 8107271-9 (Version None)
Quarter: 2012Q1

REPORT INFORMATION
  Report Type: 
  Country: None (occurrence: None)
  Receive Date: 20120202
  Receipt Date: 20120127
  Transmission Date: 20120608
  Serious: Yes (Death, Other)
  Sender: FDA-Public Use
  Company Number: US-PFIZER INC-2009216516

PATIENT
  Sex: Male
  Weight: 104.3 kg

DRUGS (3)
  1. NEURONTIN [Suspect]
     Indication: NEUROPATHY PERIPHERAL
     Dosage: 100 MG, 3X/DAY
     Route: 048
     Dates: start: 20080101
  2. LYRICA [Suspect]
     Indication: NEUROPATHY PERIPHERAL
     Dosage: 75 MG, 2X/DAY
     Route: 048
     Dates: start: 20080101
  3. ACETYLSALICYLIC ACID [Concomitant]
     Indication: MYOCARDIAL INFARCTION
     Dosage: 81 MG, 1X/DAY
     Route: 048

REACTIONS (7)
  - NEOPLASM MALIGNANT [None]
  - CHOLECYSTECTOMY [None]
  - ARTERIAL OCCLUSIVE DISEASE [None]
  - DEATH [None]
  - HOT FLUSH [None]
  - MEMORY IMPAIRMENT [None]
  - NAUSEA [None]
